FAERS Safety Report 5384007-6 (Version None)
Quarter: 2007Q3

REPORT INFORMATION
  Report Type: 
  Country: None (occurrence: None)
  Receive Date: 20070711
  Receipt Date: 20070615
  Transmission Date: 20080115
  Serious: No
  Sender: FDA-Public Use
  Company Number: IT-AVENTIS-200619326GDDC

PATIENT
  Age: 35 Year
  Sex: Female

DRUGS (2)
  1. ARAVA [Suspect]
     Indication: RHEUMATOID ARTHRITIS
     Route: 048
     Dates: start: 20010101, end: 20060829
  2. PROPYLTHIOURACIL [Concomitant]
     Indication: HYPERTHYROIDISM
     Dosage: DOSE: UNK
     Dates: end: 20060829

REACTIONS (3)
  - DRUG EXPOSURE BEFORE PREGNANCY [None]
  - DRUG EXPOSURE DURING PREGNANCY [None]
  - PREGNANCY [None]
